FAERS Safety Report 9419982 (Version 2)
Quarter: 2013Q3

REPORT INFORMATION
  Report Type: Spontaneous
  Country: CA (occurrence: CA)
  Receive Date: 20130725
  Receipt Date: 20130805
  Transmission Date: 20140515
  Serious: Yes (Death, Hospitalization, Other)
  Sender: FDA-Public Use
  Company Number: CA-JNJFOC-20130710715

PATIENT
  Sex: 0

DRUGS (6)
  1. DOXORUBICIN [Suspect]
     Indication: PLASMA CELL MYELOMA
     Dosage: 4 DAYS CONTINUOUS INFUSION, ADMINISTERED EVERY 4-6 WEEKS
     Route: 042
  2. DEXAMETHASONE [Suspect]
     Indication: PLASMA CELL MYELOMA
     Dosage: FOR FOUR DAYS, ADMINISTERED EVERY 4-6 WEEKS
     Route: 048
  3. THALIDOMIDE [Suspect]
     Indication: PLASMA CELL MYELOMA
     Dosage: DAILY TARGET DOSE OF 200 MG ADMINISTERED ORALLY (RANGE, 50-200 MG DAILY)
     Route: 048
  4. CISPLATIN [Suspect]
     Indication: PLASMA CELL MYELOMA
     Dosage: 4 DAYS CONTINUOUS INFUSION, ADMINISTERED EVERY 4-6 WEEKS
     Route: 042
  5. CYCLOPHOSPHAMIDE [Suspect]
     Indication: PLASMA CELL MYELOMA
     Dosage: 4 DAYS CONTINUOUS INFUSION, ADMINISTERED EVERY 4-6 WEEKS
     Route: 042
  6. ETOPOSIDE [Suspect]
     Indication: PLASMA CELL MYELOMA
     Dosage: 4 DAYS CONTINUOUS INFUSION, ADMINISTERED EVERY 4-6 WEEKS
     Route: 042

REACTIONS (42)
  - Pain [Unknown]
  - Neutropenic sepsis [Fatal]
  - Respiratory tract infection [Unknown]
  - Renal failure [Unknown]
  - Embolism [Unknown]
  - Peripheral sensorimotor neuropathy [Unknown]
  - Conjunctival haemorrhage [Unknown]
  - Disease progression [Unknown]
  - Sepsis [Unknown]
  - Supraventricular tachycardia [Unknown]
  - Febrile neutropenia [Unknown]
  - Mucosal inflammation [Unknown]
  - Mouth ulceration [Unknown]
  - Cardiac failure congestive [Unknown]
  - Hypomagnesaemia [Unknown]
  - Hypophosphataemia [Unknown]
  - Hypokalaemia [Unknown]
  - Hyperkalaemia [Unknown]
  - Hyperglycaemia [Unknown]
  - Fluid overload [Unknown]
  - Rectal haemorrhage [Unknown]
  - Catheter site haemorrhage [Unknown]
  - Neutropenia [Unknown]
  - Infection [Unknown]
  - Hypocalcaemia [Unknown]
  - Mouth haemorrhage [Unknown]
  - Skin infection [Unknown]
  - Herpes simplex [Unknown]
  - Vomiting [Unknown]
  - Nausea [Unknown]
  - Thrombocytopenia [Unknown]
  - Rash [Unknown]
  - Anaemia [Unknown]
  - Epistaxis [Unknown]
  - Pyrexia [Unknown]
  - Fatigue [Unknown]
  - Cough [Unknown]
  - Constipation [Unknown]
  - Pneumonitis [Unknown]
  - Diarrhoea [Unknown]
  - Hyperbilirubinaemia [Unknown]
  - Hepatic enzyme increased [Unknown]
